FAERS Safety Report 8152019-5 (Version None)
Quarter: 2012Q1

REPORT INFORMATION
  Report Type: 
  Country: None (occurrence: None)
  Receive Date: 20120214
  Receipt Date: 20120131
  Transmission Date: 20120608
  Serious: Yes (Death, Hospitalization)
  Sender: FDA-Public Use
  Company Number: 1000027433

PATIENT
  Age: 72 Year
  Sex: Male

DRUGS (4)
  1. MEMANTINE HYDROCHLORIDE [Suspect]
     Indication: DEMENTIA
     Dosage: 5 MG (5 MG,1 IN 1 D), ORAL
     Route: 048
     Dates: start: 20110607, end: 20110101
  2. ANPLAG (SARPOGRELATE HYDROCHLORIDE) (SARPOGRELATE HYDROCHLORIDE) [Concomitant]
  3. ARICEPT [Concomitant]
  4. VITAFANT F(FURSULTIAMINE HYDROCHLORIDE) (FURSULTIAMINE HYDROCHLORIDE) [Concomitant]

REACTIONS (5)
  - LYMPHOCYTE STIMULATION TEST POSITIVE [None]
  - LIVER DISORDER [None]
  - JAUNDICE [None]
  - HEPATIC FUNCTION ABNORMAL [None]
  - NO THERAPEUTIC RESPONSE [None]
